FAERS Safety Report 18486238 (Version 1)
Quarter: 2020Q4

REPORT INFORMATION
  Report Type: Spontaneous
  Country: US (occurrence: US)
  Receive Date: 20201110
  Receipt Date: 20201110
  Transmission Date: 20210114
  Serious: Yes (Other)
  Sender: FDA-Public Use
  Company Number: US-BAYER-2020-242987

PATIENT
  Age: 61 Year
  Sex: Male

DRUGS (3)
  1. HEMLIBRA [Concomitant]
     Active Substance: EMICIZUMAB-KXWH
  2. KOGENATE FS [Suspect]
     Active Substance: ANTIHEMOPHILIC FACTOR, HUMAN RECOMBINANT
     Indication: HAEMARTHROSIS
     Dosage: UNK
     Route: 042
  3. KOGENATE FS [Suspect]
     Active Substance: ANTIHEMOPHILIC FACTOR, HUMAN RECOMBINANT
     Indication: HAEMARTHROSIS
     Dosage: 1 DF, ONCE TO TREAT THE LEFT ELBOW BLEED
     Route: 042
     Dates: start: 20201026, end: 20201026

REACTIONS (1)
  - Haemarthrosis [None]

NARRATIVE: CASE EVENT DATE: 20201024
